FAERS Safety Report 16918441 (Version 1)
Quarter: 2019Q4

REPORT INFORMATION
  Report Type: Spontaneous
  Country: FR (occurrence: FR)
  Receive Date: 20191015
  Receipt Date: 20191015
  Transmission Date: 20200122
  Serious: Yes (Hospitalization)
  Sender: FDA-Public Use
  Company Number: FR-JNJFOC-20191016740

PATIENT
  Age: 53 Year
  Sex: Female

DRUGS (1)
  1. RIVAROXABAN [Suspect]
     Active Substance: RIVAROXABAN
     Indication: VENOUS THROMBOSIS
     Route: 048

REACTIONS (1)
  - Venous thrombosis [Recovered/Resolved]

NARRATIVE: CASE EVENT DATE: 2019
